FAERS Safety Report 11943974 (Version 2)
Quarter: 2016Q2

REPORT INFORMATION
  Report Type: Report from Study
  Country: JP (occurrence: JP)
  Receive Date: 20160125
  Receipt Date: 20160404
  Transmission Date: 20160815
  Serious: Yes (Death)
  Sender: FDA-Public Use
  Company Number: JP-ACTELION-A-CH2016-130088

PATIENT
  Age: 76 Year
  Sex: Male
  Weight: 48 kg

DRUGS (10)
  1. MACITENTAN [Suspect]
     Active Substance: MACITENTAN
     Indication: PULMONARY ARTERIAL HYPERTENSION
     Dosage: 10 MG, QD
     Route: 048
     Dates: start: 20150828, end: 20150926
  2. OXYGEN. [Concomitant]
     Active Substance: OXYGEN
  3. CICLESONIDE [Concomitant]
     Active Substance: CICLESONIDE
  4. TADALAFIL [Concomitant]
     Active Substance: TADALAFIL
  5. TOLVAPTAN [Concomitant]
     Active Substance: TOLVAPTAN
  6. SODIUM PICOSULFATE [Concomitant]
     Active Substance: SODIUM PICOSULFATE
  7. FUROSEMIDE. [Concomitant]
     Active Substance: FUROSEMIDE
  8. DIGOXIN. [Concomitant]
     Active Substance: DIGOXIN
  9. RIVAROXABAN [Concomitant]
     Active Substance: RIVAROXABAN
  10. INDACATEROL [Concomitant]
     Active Substance: INDACATEROL

REACTIONS (5)
  - Hypercapnia [Fatal]
  - Cardio-respiratory arrest [Fatal]
  - Emphysema [Fatal]
  - Loss of consciousness [Fatal]
  - Chronic obstructive pulmonary disease [Fatal]

NARRATIVE: CASE EVENT DATE: 20150927
